FAERS Safety Report 4335296-8 (Version None)
Quarter: 2004Q2

REPORT INFORMATION
  Report Type: 
  Country: None (occurrence: None)
  Receive Date: 20040408
  Receipt Date: 20040408
  Transmission Date: 20050107
  Serious: Yes (Death)
  Sender: FDA-Public Use
  Company Number: None

PATIENT
  Sex: Male
  Weight: 83.0083 kg

DRUGS (8)
  1. IRESSA [Suspect]
     Indication: NON-SMALL CELL LUNG CANCER
     Dosage: QD
     Dates: start: 20040312, end: 20040406
  2. CELECOXIB 400 MG [Suspect]
     Indication: NON-SMALL CELL LUNG CANCER
     Dosage: BID
     Dates: start: 20040312, end: 20040406
  3. VERAPAMIL [Concomitant]
  4. LIPITOR [Concomitant]
  5. ALPRAZOLAN [Concomitant]
  6. PROTONIX [Concomitant]
  7. FENTYNAL PATCH [Concomitant]
  8. AMBIEN [Concomitant]

REACTIONS (5)
  - ABDOMINAL DISCOMFORT [None]
  - ASCITES [None]
  - CIRCULATORY COLLAPSE [None]
  - MYOCARDIAL INFARCTION [None]
  - OEDEMA [None]
